FAERS Safety Report 10090187 (Version 2)
Quarter: 2014Q3

REPORT INFORMATION
  Report Type: Spontaneous
  Country: US (occurrence: US)
  Receive Date: 20140421
  Receipt Date: 20140721
  Transmission Date: 20150326
  Serious: Yes (Other)
  Sender: FDA-Public Use
  Company Number: US-GLAXOSMITHKLINE-A1068877A

PATIENT
  Age: 76 Year
  Sex: Male

DRUGS (3)
  1. FLUTICASONE [Suspect]
     Active Substance: FLUTICASONE\FLUTICASONE PROPIONATE
     Indication: PRODUCT USED FOR UNKNOWN INDICATION
     Route: 065
  2. ADVAIR HFA [Suspect]
     Active Substance: FLUTICASONE PROPIONATE\SALMETEROL XINAFOATE
     Indication: CHRONIC OBSTRUCTIVE PULMONARY DISEASE
     Route: 055
  3. CHEMOTHERAPY [Concomitant]
     Active Substance: UNSPECIFIED INGREDIENT

REACTIONS (9)
  - Feeling abnormal [Unknown]
  - Cough [Unknown]
  - Dizziness [Unknown]
  - Paranoia [Unknown]
  - Herpes zoster [Recovered/Resolved]
  - Neoplasm malignant [Not Recovered/Not Resolved]
  - Balance disorder [Unknown]
  - Lung disorder [Unknown]
  - Dyspnoea [Unknown]
